FAERS Safety Report 5745099-5 (Version None)
Quarter: 2008Q2

REPORT INFORMATION
  Report Type: 
  Country: None (occurrence: None)
  Receive Date: 20080521
  Receipt Date: 20080519
  Transmission Date: 20081010
  Serious: Yes (Hospitalization)
  Sender: FDA-Public Use
  Company Number: US-BRISTOL-MYERS SQUIBB COMPANY-13766258

PATIENT
  Age: 76 Year
  Sex: Female
  Weight: 66 kg

DRUGS (16)
  1. CARBOPLATIN [Suspect]
     Indication: NON-SMALL CELL LUNG CANCER
     Route: 042
     Dates: start: 20070406, end: 20070406
  2. PACLITAXEL [Suspect]
     Indication: NON-SMALL CELL LUNG CANCER
     Route: 042
     Dates: start: 20070406, end: 20070406
  3. CP-751,871 [Suspect]
     Indication: NON-SMALL CELL LUNG CANCER
     Dosage: ALSO RECIEVED FROM 02AUG07
     Route: 042
     Dates: start: 20070406, end: 20070406
  4. ADVAIR DISKUS 100/50 [Concomitant]
     Dosage: 1 DOSAGE FORM =1 PUFF
     Route: 055
     Dates: start: 20050101
  5. AMBIEN [Concomitant]
     Route: 048
     Dates: start: 20070314
  6. FUROSEMIDE [Concomitant]
     Route: 048
     Dates: start: 20020101
  7. KLOR-CON [Concomitant]
     Route: 048
     Dates: start: 20020101
  8. PREVACID [Concomitant]
     Route: 048
     Dates: start: 20070301
  9. SPIRIVA [Concomitant]
     Dosage: 1 DOSAGE FORM = 1 PUFF
     Route: 055
     Dates: start: 20060101
  10. WARFARIN SODIUM [Concomitant]
     Route: 048
     Dates: start: 20070309, end: 20070416
  11. XOPENEX [Concomitant]
     Dosage: 1 DOSAGE FORM = 1-2 PUFFS
     Route: 055
     Dates: start: 20070309
  12. ZOFRAN [Concomitant]
     Route: 048
     Dates: start: 20070401
  13. LANOXIN [Concomitant]
     Route: 048
     Dates: start: 20070403, end: 20070416
  14. NYSTATIN [Concomitant]
     Route: 048
     Dates: start: 20070413, end: 20070417
  15. LIDOCAINE 2% [Concomitant]
     Route: 048
     Dates: start: 20070412, end: 20070413
  16. LEVOTHYROXINE SODIUM [Concomitant]
     Route: 048
     Dates: start: 20060101

REACTIONS (3)
  - CELLULITIS [None]
  - HYPONATRAEMIA [None]
  - SEPSIS [None]
